FAERS Safety Report 14407539 (Version 1)
Quarter: 2018Q1

REPORT INFORMATION
  Report Type: Report from Study
  Country: DE (occurrence: DE)
  Receive Date: 20180118
  Receipt Date: 20180118
  Transmission Date: 20180509
  Serious: Yes (Death, Hospitalization)
  Sender: FDA-Public Use
  Company Number: PHHO2014DE012568

PATIENT
  Age: 50 Year
  Sex: Female
  Weight: 53 kg

DRUGS (3)
  1. L-THYROXIN [Concomitant]
     Active Substance: LEVOTHYROXINE SODIUM
     Indication: HYPOTHYROIDISM
     Dosage: 50 UG, BID
     Route: 048
  2. COMPARATOR PACLITAXEL [Suspect]
     Active Substance: PACLITAXEL
     Indication: GASTRIC CANCER
     Dosage: 80 MG, QW (DAY 1, DAY 8 AND DAY 15)
     Route: 042
     Dates: start: 20140828
  3. PLACEBO [Suspect]
     Active Substance: UNSPECIFIED INGREDIENT
     Indication: GASTRIC CANCER
     Dosage: DAILY D1-D28
     Route: 048
     Dates: start: 20140828, end: 20140929

REACTIONS (3)
  - Pain [Recovered/Resolved]
  - Malignant neoplasm progression [Fatal]
  - Dyspnoea [Recovered/Resolved]

NARRATIVE: CASE EVENT DATE: 20140916
